FAERS Safety Report 19879127 (Version 1)
Quarter: 2021Q3

REPORT INFORMATION
  Report Type: Report from Study
  Country: None (occurrence: IT)
  Receive Date: 20210924
  Receipt Date: 20210924
  Transmission Date: 20211014
  Serious: Yes (Other)
  Sender: FDA-Public Use
  Company Number: IT-ABBVIE-21K-083-4091014-00

PATIENT
  Age: 46 Year
  Sex: Male

DRUGS (1)
  1. SODIUM VALPROATE/VALPROIC ACID [Suspect]
     Active Substance: VALPROATE SODIUM
     Indication: FEELING OF DESPAIR
     Route: 048
     Dates: start: 20180713, end: 20180713

REACTIONS (2)
  - Drug abuse [Unknown]
  - Somnolence [Recovering/Resolving]

NARRATIVE: CASE EVENT DATE: 20180713
